FAERS Safety Report 23469158 (Version 1)
Quarter: 2024Q1

REPORT INFORMATION
  Report Type: Spontaneous
  Country: BR (occurrence: BR)
  Receive Date: 20240202
  Receipt Date: 20240202
  Transmission Date: 20240410
  Serious: Yes (Other)
  Sender: FDA-Public Use
  Company Number: BR-002147023-NVSC2024BR021875

PATIENT
  Sex: Female

DRUGS (1)
  1. DIOVAN [Suspect]
     Active Substance: VALSARTAN
     Indication: Product used for unknown indication
     Route: 065

REACTIONS (4)
  - Peripheral paralysis [Recovered/Resolved]
  - Peripheral swelling [Recovered/Resolved]
  - Dosage not adjusted [Recovered/Resolved]
  - Fatigue [Recovered/Resolved]
